FAERS Safety Report 8922456 (Version 1)
Quarter: 2012Q4

REPORT INFORMATION
  Report Type: 
  Country: FR (occurrence: FR)
  Receive Date: 20121123
  Receipt Date: 20121123
  Transmission Date: 20130627
  Serious: Yes (Hospitalization, Congenital Anomaly, Other)
  Sender: FDA-Public Use
  Company Number: FR-JNJFOC-20121110089

PATIENT
  Age: 0 Year
  Sex: Male

DRUGS (1)
  1. EPITOMAX [Suspect]
     Indication: FOETAL EXPOSURE DURING PREGNANCY
     Route: 064
     Dates: end: 20120802

REACTIONS (2)
  - Hypocalcaemia [Recovered/Resolved]
  - Poor weight gain neonatal [Recovered/Resolved]
